FAERS Safety Report 13363440 (Version 3)
Quarter: 2017Q2

REPORT INFORMATION
  Report Type: Spontaneous
  Country: US (occurrence: US)
  Receive Date: 20170323
  Receipt Date: 20170425
  Transmission Date: 20170830
  Serious: No
  Sender: FDA-Public Use
  Company Number: US-ASTRAZENECA-2017SE29449

PATIENT
  Sex: Female
  Weight: 108.9 kg

DRUGS (6)
  1. XARELTO [Concomitant]
     Active Substance: RIVAROXABAN
  2. OSTEOCAL [Concomitant]
  3. BYDUREON [Suspect]
     Active Substance: EXENATIDE
     Indication: DIABETES MELLITUS
     Route: 058
  4. GLIMEPIRIDE. [Concomitant]
     Active Substance: GLIMEPIRIDE
  5. INVOKANA [Concomitant]
     Active Substance: CANAGLIFLOZIN
     Route: 048
  6. GLYBURIDE. [Concomitant]
     Active Substance: GLYBURIDE
     Route: 048

REACTIONS (18)
  - Cystitis [Recovered/Resolved]
  - Blood pressure abnormal [Unknown]
  - Peripheral swelling [Unknown]
  - Intentional product misuse [Unknown]
  - Fall [Unknown]
  - Syncope [Unknown]
  - Blood glucose decreased [Unknown]
  - Dizziness [Unknown]
  - Oedema [Unknown]
  - Fatigue [Unknown]
  - Dehydration [Unknown]
  - Injection site extravasation [Unknown]
  - Inappropriate schedule of drug administration [Unknown]
  - Product quality issue [Unknown]
  - Pain in extremity [Unknown]
  - Skin disorder [Unknown]
  - Product preparation error [Unknown]
  - Wrong technique in product usage process [Unknown]
